FAERS Safety Report 4605808-5 (Version None)
Quarter: 2005Q1

REPORT INFORMATION
  Report Type: 
  Country: None (occurrence: None)
  Receive Date: 20050115
  Receipt Date: 20040910
  Transmission Date: 20050727
  Serious: Yes (Hospitalization)
  Sender: FDA-Public Use
  Company Number: A03200403142

PATIENT
  Age: 57 Year
  Sex: Male

DRUGS (3)
  1. AMBIEN [Suspect]
     Indication: SLEEP DISORDER
     Dosage: 140 MG ONCE; ORAL
     Route: 048
     Dates: start: 20040805, end: 20040805
  2. ATORVASTATIN CALCIUM [Concomitant]
  3. VITAMINS NOS [Concomitant]

REACTIONS (1)
  - ACCIDENTAL OVERDOSE [None]
